FAERS Safety Report 10746288 (Version 3)
Quarter: 2015Q1

REPORT INFORMATION
  Report Type: Spontaneous
  Country: BR (occurrence: BR)
  Receive Date: 20150128
  Receipt Date: 20150204
  Transmission Date: 20150721
  Serious: Yes (Death, Hospitalization)
  Sender: FDA-Public Use
  Company Number: BR-PFIZER INC-2014339780

PATIENT
  Age: 59 Year
  Sex: Female

DRUGS (5)
  1. SUTENT [Suspect]
     Active Substance: SUNITINIB MALATE
     Indication: RENAL CELL CARCINOMA
     Dosage: 50 MG, CYCLIC
     Route: 048
     Dates: start: 20140927, end: 2014
  2. SUTENT [Suspect]
     Active Substance: SUNITINIB MALATE
     Dosage: 37.5 MG, CYCLIC (25MG + 12.5 MG, CYCLE 2X2)
     Route: 048
     Dates: start: 2014, end: 201411
  3. LOSARTAN [Concomitant]
     Active Substance: LOSARTAN
     Indication: HYPERTENSION
     Dosage: UNK
  4. OMEPRAZOLE. [Concomitant]
     Active Substance: OMEPRAZOLE
     Dosage: UNK
     Dates: start: 2010
  5. CORDIS [Concomitant]
     Indication: CARDIAC DISORDER
     Dosage: UNK
     Dates: start: 2013

REACTIONS (13)
  - Abdominal pain [Not Recovered/Not Resolved]
  - Mouth injury [Unknown]
  - Dry skin [Unknown]
  - Cardio-respiratory arrest [Fatal]
  - Feeling abnormal [Unknown]
  - Throat lesion [Unknown]
  - Muscular weakness [Unknown]
  - Haemorrhage [Recovered/Resolved]
  - Dysphagia [Unknown]
  - Disease progression [Unknown]
  - Renal cell carcinoma [Unknown]
  - Pain in extremity [Not Recovered/Not Resolved]
  - Chest pain [Not Recovered/Not Resolved]

NARRATIVE: CASE EVENT DATE: 2014
